FAERS Safety Report 26114960 (Version 1)
Quarter: 2025Q4

REPORT INFORMATION
  Report Type: Spontaneous
  Country: EU (occurrence: EU)
  Receive Date: 20251203
  Receipt Date: 20251203
  Transmission Date: 20260118
  Serious: Yes (Life-Threatening, Hospitalization, Other)
  Sender: AUROBINDO
  Company Number: EU-LRB-01098380

PATIENT
  Age: 73 Year
  Sex: Female
  Weight: 43 kg

DRUGS (1)
  1. PANTOPRAZOLE [Suspect]
     Active Substance: PANTOPRAZOLE
     Indication: Prophylaxis
     Dosage: 40 MILLIGRAM, ONCE A DAY
     Dates: start: 20200101

REACTIONS (2)
  - Arrhythmia [Recovered/Resolved]
  - Hypomagnesaemia [Recovered/Resolved]
